FAERS Safety Report 7553647-8 (Version None)
Quarter: 2011Q2

REPORT INFORMATION
  Report Type: 
  Country: None (occurrence: None)
  Receive Date: 20110617
  Receipt Date: 20101217
  Transmission Date: 20111010
  Serious: Yes (Other)
  Sender: FDA-Public Use
  Company Number: US-MYLANLABS-2010S1021559

PATIENT
  Age: 0 Year
  Sex: Female

DRUGS (3)
  1. FERROUS SULFATE TAB [Concomitant]
  2. MULTIVITAMINS WITH FLUORIDE /02272601/ [Concomitant]
  3. OMEPRAZOLE [Suspect]
     Indication: GASTROOESOPHAGEAL REFLUX DISEASE
     Route: 048
     Dates: start: 20100922, end: 20100924

REACTIONS (1)
  - HYPERSENSITIVITY [None]
